FAERS Safety Report 8355453-3 (Version None)
Quarter: 2012Q2

REPORT INFORMATION
  Report Type: 
  Country: None (occurrence: None)
  Receive Date: 20120511
  Receipt Date: 20120504
  Transmission Date: 20120825
  Serious: Yes (Other)
  Sender: FDA-Public Use
  Company Number: US-ROXANE LABORATORIES, INC.-2012-RO-01186RO

PATIENT
  Age: 52 Year
  Sex: Male

DRUGS (9)
  1. WARFARIN SODIUM [Suspect]
  2. SPIRONOLACTONE [Suspect]
  3. ISOSORBIDE MONONITRATE [Suspect]
  4. DIGOXIN [Suspect]
  5. CARVEDILOL [Suspect]
  6. HYDRALAZINE HCL [Suspect]
  7. FUROSEMIDE [Suspect]
  8. LISINOPRIL [Suspect]
  9. AMIODARONE HCL [Suspect]

REACTIONS (6)
  - HYPERKALAEMIA [None]
  - HALLUCINATION, AUDITORY [None]
  - TOXICITY TO VARIOUS AGENTS [None]
  - BRADYCARDIA [None]
  - HYPOTENSION [None]
  - RENAL FAILURE ACUTE [None]
